FAERS Safety Report 7474423-0 (Version None)
Quarter: 2011Q2

REPORT INFORMATION
  Report Type: 
  Country: None (occurrence: None)
  Receive Date: 20110512
  Receipt Date: 20110415
  Transmission Date: 20111010
  Serious: No
  Sender: FDA-Public Use
  Company Number: US-BAYER-2011-033445

PATIENT
  Age: 76 Year
  Sex: Female

DRUGS (24)
  1. ADVAIR DISKUS 100/50 [Concomitant]
  2. DIGOXINE [Concomitant]
  3. COZAAR [Concomitant]
  4. SULPHA [Concomitant]
  5. ASPIRIN [Concomitant]
  6. LIPITOR [Concomitant]
  7. VITAMIN D [Concomitant]
  8. COUMADIN [Concomitant]
  9. FOSAMAX [Concomitant]
  10. MAGNESIUM [MAGNESIUM] [Concomitant]
  11. ASMANEX TWISTHALER [Concomitant]
  12. TOPROL-XL [Concomitant]
  13. LASIX [Concomitant]
  14. SPIRIVA [Concomitant]
  15. ZETIA [Concomitant]
  16. CALCIUM [CALCIUM] [Concomitant]
  17. XOPENEX [Concomitant]
  18. ASPIRIN [Concomitant]
  19. MONOPRIL [Concomitant]
  20. AVELOX [Suspect]
     Indication: BRONCHITIS
     Dosage: UNK, QD
     Route: 048
     Dates: start: 20110414
  21. POTASSIUM [POTASSIUM] [Concomitant]
  22. ZANEX [Concomitant]
  23. TEGRETOL [Concomitant]
  24. OXYGEN [Concomitant]

REACTIONS (1)
  - PAIN IN EXTREMITY [None]
